FAERS Safety Report 9894402 (Version 4)
Quarter: 2014Q2

REPORT INFORMATION
  Report Type: Spontaneous
  Country: AU (occurrence: AU)
  Receive Date: 20140213
  Receipt Date: 20140526
  Transmission Date: 20141212
  Serious: Yes (Life-Threatening, Hospitalization, Other)
  Sender: FDA-Public Use
  Company Number: AU-AMGEN-AUSSP2014009938

PATIENT
  Age: 69 Year
  Sex: Female

DRUGS (1)
  1. XGEVA [Suspect]
     Indication: METASTASES TO BONE
     Dosage: 120 MG, Q4WK
     Route: 058
     Dates: start: 20140122

REACTIONS (4)
  - Renal failure [Recovering/Resolving]
  - Respiratory failure [Recovering/Resolving]
  - Malaise [Recovering/Resolving]
  - Metastases to liver [Unknown]
